FAERS Safety Report 5319646-1 (Version None)
Quarter: 2007Q2

REPORT INFORMATION
  Report Type: 
  Country: None (occurrence: None)
  Receive Date: 20070501
  Receipt Date: 20070416
  Transmission Date: 20071010
  Serious: Yes (Life-Threatening, Hospitalization)
  Sender: FDA-Public Use
  Company Number: 012573

PATIENT
  Sex: Male
  Weight: 108.8 kg

DRUGS (2)
  1. ADDERALL 10 [Suspect]
     Indication: ATTENTION DEFICIT/HYPERACTIVITY DISORDER
     Dosage: 1 TABLET , QD, ORAL
     Route: 048
  2. TRAZODONE HCL [Concomitant]

REACTIONS (4)
  - ALTERED VISUAL DEPTH PERCEPTION [None]
  - CEREBROVASCULAR ACCIDENT [None]
  - COORDINATION ABNORMAL [None]
  - INTRACRANIAL ANEURYSM [None]
